FAERS Safety Report 4518050-3 (Version None)
Quarter: 2004Q4

REPORT INFORMATION
  Report Type: 
  Country: None (occurrence: None)
  Receive Date: 20041203
  Receipt Date: 20041122
  Transmission Date: 20050328
  Serious: Yes (Other)
  Sender: FDA-Public Use
  Company Number: US-GLAXOSMITHKLINE-A0534873A

PATIENT
  Age: 47 Year

DRUGS (1)
  1. LAMICTAL [Suspect]
     Indication: CONVULSION
     Route: 048

REACTIONS (3)
  - CONVULSION [None]
  - HYPOAESTHESIA ORAL [None]
  - VISION BLURRED [None]
